FAERS Safety Report 6974666-6 (Version None)
Quarter: 2010Q3

REPORT INFORMATION
  Report Type: 
  Country: None (occurrence: None)
  Receive Date: 20100909
  Receipt Date: 20100831
  Transmission Date: 20110219
  Serious: Yes (Other)
  Sender: FDA-Public Use
  Company Number: US-AMGEN-QUU435460

PATIENT
  Sex: Female

DRUGS (1)
  1. ENBREL [Suspect]
     Indication: RHEUMATOID ARTHRITIS
     Route: 058

REACTIONS (13)
  - CERVIX CARCINOMA [None]
  - DRY SKIN [None]
  - FUNGAL INFECTION [None]
  - INCREASED TENDENCY TO BRUISE [None]
  - INJECTION SITE HAEMATOMA [None]
  - INJECTION SITE PAIN [None]
  - INJECTION SITE SWELLING [None]
  - LYMPHADENOPATHY [None]
  - RHEUMATOID ARTHRITIS [None]
  - SKIN LACERATION [None]
  - UTERINE LEIOMYOMA [None]
  - VAGINITIS BACTERIAL [None]
  - WOUND HAEMORRHAGE [None]
